FAERS Safety Report 5565561-8 (Version None)
Quarter: 2007Q4

REPORT INFORMATION
  Report Type: 
  Country: None (occurrence: None)
  Receive Date: 20071218
  Receipt Date: 20051117
  Transmission Date: 20080405
  Serious: Yes (Death, Congenital Anomaly)
  Sender: FDA-Public Use
  Company Number: US-ROCHE-425282

PATIENT
  Age: 2 Week
  Sex: Female

DRUGS (1)
  1. ISOTRETINOIN [Suspect]
     Dates: start: 19941201, end: 19941201

REACTIONS (2)
  - CONGENITAL OPTIC NERVE ANOMALY [None]
  - DEATH [None]
